FAERS Safety Report 12168380 (Version 1)
Quarter: 2016Q1

REPORT INFORMATION
  Report Type: Report from Study
  Country: GB (occurrence: GB)
  Receive Date: 20160310
  Receipt Date: 20160310
  Transmission Date: 20160526
  Serious: Yes (Other)
  Sender: FDA-Public Use
  Company Number: GB-SA-2016SA048668

PATIENT
  Age: 34 Year
  Sex: Male

DRUGS (4)
  1. CYCLOSPORINE. [Concomitant]
     Active Substance: CYCLOSPORINE
     Indication: PROPHYLAXIS
  2. ACICLOVIR [Concomitant]
     Active Substance: ACYCLOVIR
     Indication: PROPHYLAXIS AGAINST GRAFT VERSUS HOST DISEASE
  3. ALEMTUZUMAB [Suspect]
     Active Substance: ALEMTUZUMAB
     Indication: STEM CELL TRANSPLANT
     Route: 042
  4. CYTARABINE. [Concomitant]
     Active Substance: CYTARABINE
     Indication: STEM CELL TRANSPLANT

REACTIONS (1)
  - Post transplant lymphoproliferative disorder [Unknown]
